FAERS Safety Report 7212837-4 (Version None)
Quarter: 2011Q1

REPORT INFORMATION
  Report Type: 
  Country: None (occurrence: None)
  Receive Date: 20110106
  Receipt Date: 20101228
  Transmission Date: 20110831
  Serious: Yes (Hospitalization, Other)
  Sender: FDA-Public Use
  Company Number: US-ELI_LILLY_AND_COMPANY-US201009003127

PATIENT
  Sex: Female

DRUGS (19)
  1. PREDNISONE [Concomitant]
     Dosage: 30 MG, UNKNOWN
     Route: 065
     Dates: start: 20100901
  2. LEXAPRO [Concomitant]
     Dosage: UNK, UNKNOWN
     Route: 065
  3. MIRALAX [Concomitant]
     Dosage: UNK, EACH EVENING
     Route: 065
  4. PREDNISONE [Concomitant]
     Dosage: 10 MG, UNKNOWN
     Route: 065
  5. PREDNISONE [Concomitant]
     Dosage: 8 MG, UNKNOWN
     Route: 065
  6. PROTONIX [Concomitant]
     Indication: GASTRIC DISORDER
     Dosage: UNK, EACH MORNING
     Route: 065
  7. AZOPT [Concomitant]
     Dosage: UNK, UNKNOWN
     Route: 065
  8. XANAX [Concomitant]
     Dosage: UNK, UNKNOWN
     Route: 065
  9. XALATAN [Concomitant]
     Dosage: UNK, UNKNOWN
     Route: 065
  10. PREDNISONE [Concomitant]
     Dosage: 7 MG, UNKNOWN
     Route: 065
  11. FISH OIL [Concomitant]
     Dosage: UNK, UNKNOWN
     Route: 065
  12. FORTEO [Suspect]
     Indication: OSTEOPOROSIS
     Dosage: 20 UG, DAILY (1/D)
     Route: 065
     Dates: start: 20100611, end: 20101014
  13. PREDNISONE [Concomitant]
     Dosage: 9 MG, UNKNOWN
     Route: 065
  14. CALCIUM                                 /N/A/ [Concomitant]
     Dosage: UNK, UNKNOWN
     Route: 065
  15. ALBUTEROL [Concomitant]
     Dosage: UNK, EVERY 4 HRS
     Route: 065
     Dates: start: 20100101
  16. FORTEO [Suspect]
     Dosage: 20 UG, DAILY (1/D)
     Dates: start: 20100611, end: 20101014
  17. PREDNISONE [Concomitant]
     Dosage: 40 MG, UNKNOWN
     Route: 065
  18. ASCORBIC ACID [Concomitant]
     Dosage: UNK, UNKNOWN
     Route: 065
  19. FOLIC ACID [Concomitant]
     Dosage: UNK, UNKNOWN
     Route: 065

REACTIONS (18)
  - FRACTURED SACRUM [None]
  - WEGENER'S GRANULOMATOSIS [None]
  - BACTERIAL INFECTION [None]
  - VOMITING [None]
  - PAIN IN EXTREMITY [None]
  - NECK PAIN [None]
  - COUGH [None]
  - DYSKINESIA [None]
  - MUSCULOSKELETAL PAIN [None]
  - SPINAL FRACTURE [None]
  - ABNORMAL SENSATION IN EYE [None]
  - FATIGUE [None]
  - MYALGIA [None]
  - THROMBOSIS [None]
  - ARTHRALGIA [None]
  - PULMONARY EMBOLISM [None]
  - DYSPNOEA [None]
  - THORACIC VERTEBRAL FRACTURE [None]
